FAERS Safety Report 6314574-7 (Version None)
Quarter: 2009Q3

REPORT INFORMATION
  Report Type: 
  Country: None (occurrence: None)
  Receive Date: 20090819
  Receipt Date: 20090814
  Transmission Date: 20100115
  Serious: Yes (Death, Other)
  Sender: FDA-Public Use
  Company Number: PHHY2009GB20924

PATIENT
  Sex: Male
  Weight: 96.8 kg

DRUGS (2)
  1. CLOZARIL [Suspect]
     Indication: SCHIZOPHRENIA
     Dosage: 300 MG, DAILY
     Dates: start: 20080721
  2. HYOSCINE HBR HYT [Concomitant]
     Indication: SALIVARY HYPERSECRETION
     Dosage: 600 UG, UNK
     Route: 048
     Dates: start: 20090101

REACTIONS (5)
  - FALL [None]
  - FATTY LIVER ALCOHOLIC [None]
  - HEAD INJURY [None]
  - HYPOTENSION [None]
  - TACHYCARDIA [None]
